FAERS Safety Report 8577631-0 (Version None)
Quarter: 2012Q3

REPORT INFORMATION
  Report Type: 
  Country: None (occurrence: None)
  Receive Date: 20120807
  Receipt Date: 20120731
  Transmission Date: 20120928
  Serious: Yes (Death)
  Sender: FDA-Public Use
  Company Number: FR-SANOFI-AVENTIS-2012SA054356

PATIENT
  Age: 89 Year
  Sex: Female

DRUGS (15)
  1. ALPRAZOLAM [Concomitant]
  2. OXYCODONE HCL [Suspect]
     Indication: ABDOMINAL PAIN
     Route: 048
     Dates: start: 20120618, end: 20120629
  3. LOVENOX [Suspect]
     Indication: THROMBOSIS PROPHYLAXIS
     Route: 058
     Dates: start: 20120618, end: 20120630
  4. POTASSIUM CHLORIDE [Concomitant]
  5. NEXIUM [Concomitant]
  6. ASPIRIN [Concomitant]
  7. CALCIUM CARBONATE [Concomitant]
  8. TRAMADOL HCL [Concomitant]
  9. TRANSIPEG /FRA/ [Concomitant]
  10. FOLIC ACID [Suspect]
     Indication: FOLATE DEFICIENCY
     Route: 048
     Dates: start: 20120619, end: 20120629
  11. GAVISCON [Concomitant]
  12. FUROSEMIDE [Concomitant]
  13. CYMBALTA [Suspect]
     Indication: ANXIETY
     Route: 048
     Dates: start: 20120626, end: 20120629
  14. ROCEPHIN [Suspect]
     Indication: LUNG INFECTION
     Dosage: FORM: POWDER AND SOLUTION FOR INJECTION
     Route: 058
     Dates: start: 20120618, end: 20120629
  15. ACETAMINOPHEN [Concomitant]

REACTIONS (3)
  - CYTOLYTIC HEPATITIS [None]
  - OCULAR ICTERUS [None]
  - PYREXIA [None]
